FAERS Safety Report 5554244-6 (Version None)
Quarter: 2007Q4

REPORT INFORMATION
  Report Type: 
  Country: None (occurrence: None)
  Receive Date: 20071213
  Receipt Date: 20071206
  Transmission Date: 20080405
  Serious: Yes (Death)
  Sender: FDA-Public Use
  Company Number: A0668396A

PATIENT
  Age: 54 Year
  Sex: Female
  Weight: 74.5 kg

DRUGS (5)
  1. ARRANON [Suspect]
     Indication: NON-HODGKIN'S LYMPHOMA
     Dosage: 2550MG VARIABLE DOSE
     Route: 042
     Dates: start: 20070507, end: 20070713
  2. GABAPENTIN [Suspect]
     Indication: DRUG USE FOR UNKNOWN INDICATION
     Route: 065
     Dates: start: 20070803
  3. STEROIDS [Concomitant]
  4. UNKNOWN MEDICATION [Concomitant]
     Indication: GASTRIC DISORDER
  5. PENTOSTATIN [Concomitant]
     Indication: CHEMOTHERAPY
     Route: 042
     Dates: start: 20070430, end: 20070514

REACTIONS (4)
  - DIZZINESS [None]
  - GAIT DISTURBANCE [None]
  - PARAESTHESIA [None]
  - PERIPHERAL MOTOR NEUROPATHY [None]
